FAERS Safety Report 23849673 (Version 2)
Quarter: 2024Q2

REPORT INFORMATION
  Report Type: Report from Study
  Country: CR (occurrence: CR)
  Receive Date: 20240513
  Receipt Date: 20240617
  Transmission Date: 20240715
  Serious: No
  Sender: FDA-Public Use
  Company Number: CR-002147023-NVSC2024CR089646

PATIENT
  Age: 54 Year
  Sex: Female

DRUGS (4)
  1. KISQALI [Suspect]
     Active Substance: RIBOCICLIB
     Indication: Breast cancer
     Dosage: 1 DOSAGE FORM, TID/ (1 TABLET AFTER BREAKFAST, 1 TABLET AFTER LUNCH AND 1 TABLET AFTER DINNER)
     Route: 048
     Dates: start: 20240305
  2. KISQALI [Suspect]
     Active Substance: RIBOCICLIB
     Dosage: 600 MG, TID, 3 UNITS
     Route: 048
     Dates: start: 20240306
  3. ENALAPRIL [Concomitant]
     Active Substance: ENALAPRIL
     Indication: Product used for unknown indication
     Dosage: 20 MG, QD
     Route: 065
  4. METFORMIN [Concomitant]
     Active Substance: METFORMIN HYDROCHLORIDE
     Indication: Product used for unknown indication
     Dosage: 1 IN THE MORNING AND ANOTHER IN THE AFTERNOON
     Route: 065

REACTIONS (5)
  - Electrocardiogram abnormal [Recovered/Resolved]
  - Gastritis [Recovered/Resolved]
  - Diarrhoea [Recovered/Resolved]
  - Abdominal pain [Recovered/Resolved]
  - Off label use [Not Recovered/Not Resolved]

NARRATIVE: CASE EVENT DATE: 20240305
